FAERS Safety Report 9079098 (Version 1)
Quarter: 2013Q1

REPORT INFORMATION
  Report Type: Spontaneous
  Country: US (occurrence: US)
  Receive Date: 20130130
  Receipt Date: 20130130
  Transmission Date: 20140127
  Serious: Yes (Death, Other)
  Sender: FDA-Public Use
  Company Number: US-ROCHE-1046942

PATIENT
  Sex: Female
  Weight: 68.1 kg

DRUGS (1)
  1. ACCUTANE [Suspect]
     Indication: RASH
     Route: 065
     Dates: start: 1997, end: 2000

REACTIONS (3)
  - Death [Fatal]
  - Crohn^s disease [Unknown]
  - Inflammatory bowel disease [Unknown]
